FAERS Safety Report 4749358-4 (Version None)
Quarter: 2005Q3

REPORT INFORMATION
  Report Type: 
  Country: None (occurrence: None)
  Receive Date: 20050819
  Receipt Date: 20050817
  Transmission Date: 20060218
  Serious: Yes (Death, Hospitalization)
  Sender: FDA-Public Use
  Company Number: FR-MERCK-0508FRA00023

PATIENT
  Age: 84 Year
  Sex: Female

DRUGS (2)
  1. NOROXIN [Suspect]
     Indication: URINARY TRACT INFECTION
     Route: 048
     Dates: start: 20050614, end: 20050619
  2. NOROXIN [Suspect]
     Route: 048
     Dates: start: 20050620, end: 20050623

REACTIONS (7)
  - ALANINE AMINOTRANSFERASE ABNORMAL [None]
  - ASPARTATE AMINOTRANSFERASE ABNORMAL [None]
  - BLOOD BILIRUBIN INCREASED [None]
  - DEATH [None]
  - GAMMA-GLUTAMYLTRANSFERASE ABNORMAL [None]
  - LIVER FUNCTION TEST ABNORMAL [None]
  - THROMBOCYTOPENIA [None]
